FAERS Safety Report 4588475-9 (Version None)
Quarter: 2005Q1

REPORT INFORMATION
  Report Type: 
  Country: None (occurrence: None)
  Receive Date: 20050216
  Receipt Date: 20050131
  Transmission Date: 20050727
  Serious: Yes (Hospitalization)
  Sender: FDA-Public Use
  Company Number: USA050189517

PATIENT
  Age: 79 Year
  Sex: Female
  Weight: 77 kg

DRUGS (15)
  1. FORTEO [Suspect]
     Indication: OSTEOPOROSIS
     Dosage: 20 UG/1 DAY
  2. CITRACAL (CALCIUM CITRATE) [Concomitant]
  3. FIBERCON (POLYCARBOPHIL CALCIUM) [Concomitant]
  4. LASIX [Concomitant]
  5. SYNTHROID [Concomitant]
  6. PROTONIX [Concomitant]
  7. VITAMIN D [Concomitant]
  8. EFFEXOR [Concomitant]
  9. ALPRAZOLAM [Concomitant]
  10. HYDROXYZINE HYDROCHLORIDE [Concomitant]
  11. MUCINEX (GUAIFENESIN L.A.) [Concomitant]
  12. ACETAMINOPHEN AND HYDROCODONE BITARTRATE [Concomitant]
  13. TOPROL-XL [Concomitant]
  14. GABAPENTIN [Concomitant]
  15. OCUVITE [Concomitant]

REACTIONS (9)
  - ASTHENIA [None]
  - BACK INJURY [None]
  - CONTUSION [None]
  - FALL [None]
  - HEAD INJURY [None]
  - HYPERSOMNIA [None]
  - PHARMACEUTICAL PRODUCT COMPLAINT [None]
  - SOMNOLENCE [None]
  - UPPER LIMB FRACTURE [None]
